FAERS Safety Report 22259286 (Version 1)
Quarter: 2023Q2

REPORT INFORMATION
  Report Type: Spontaneous
  Country: US (occurrence: None)
  Receive Date: 20230426
  Receipt Date: 20230426
  Transmission Date: 20230721
  Serious: No
  Sender: FDA-Public Use
  Company Number: None

PATIENT
  Age: 5 Month
  Sex: Male

DRUGS (3)
  1. RAVICTI [Suspect]
     Active Substance: GLYCEROL PHENYLBUTYRATE
     Dosage: FREQUENCY : 3 TIMES A DAY;?
     Route: 048
  2. Pantoprazole, compounded [Concomitant]
  3. Poly-Vi-Sol/Iron Soln [Concomitant]

REACTIONS (1)
  - Product storage error [None]

NARRATIVE: CASE EVENT DATE: 20230426
